FAERS Safety Report 6558136-5 (Version None)
Quarter: 2010Q1

REPORT INFORMATION
  Report Type: 
  Country: None (occurrence: None)
  Receive Date: 20100129
  Receipt Date: 20100119
  Transmission Date: 20100710
  Serious: Yes (Hospitalization)
  Sender: FDA-Public Use
  Company Number: B0627003A

PATIENT
  Sex: Male

DRUGS (7)
  1. ARIXTRA [Suspect]
     Dosage: 2.5MG PER DAY
     Route: 058
     Dates: start: 20091224, end: 20091226
  2. DIAMICRON [Concomitant]
     Route: 065
  3. DIFFU K [Concomitant]
     Route: 065
  4. SERESTA [Concomitant]
     Route: 065
  5. KEPPRA [Concomitant]
     Route: 065
  6. MANNITOL [Concomitant]
     Route: 065
     Dates: start: 20091224
  7. CORTICOTHERAPY [Concomitant]
     Route: 065
     Dates: start: 20091224

REACTIONS (2)
  - CEREBRAL HAEMORRHAGE [None]
  - HEMIPLEGIA [None]
